FAERS Safety Report 7676261-2 (Version None)
Quarter: 2011Q3

REPORT INFORMATION
  Report Type: 
  Country: None (occurrence: None)
  Receive Date: 20110805
  Receipt Date: 20110721
  Transmission Date: 20111222
  Serious: Yes (Hospitalization)
  Sender: FDA-Public Use
  Company Number: 2011MA009279

PATIENT
  Age: 21 Year
  Sex: Male

DRUGS (2)
  1. OXYCODONE HCL [Suspect]
     Indication: ABDOMINAL PAIN
     Dosage: 20 MG;Q12HR
  2. ACETAMINOPHEN [Suspect]
     Indication: PAIN

REACTIONS (3)
  - INADEQUATE ANALGESIA [None]
  - TACHYCARDIA [None]
  - HYPERAESTHESIA [None]
